FAERS Safety Report 6816941-1 (Version None)
Quarter: 2010Q2

REPORT INFORMATION
  Report Type: 
  Country: None (occurrence: None)
  Receive Date: 20100630
  Receipt Date: 20100614
  Transmission Date: 20101027
  Serious: Yes (Hospitalization)
  Sender: FDA-Public Use
  Company Number: IDR-00384

PATIENT
  Age: 49 Year
  Sex: Male

DRUGS (3)
  1. PROPRANOLOL [Suspect]
     Indication: MIGRAINE
     Dosage: 160 MG ORAL FORLULATION: CAPSULE CONTR REL
     Route: 048
     Dates: end: 20100401
  2. KETOPROFEN [Suspect]
     Indication: ARTHRALGIA
     Dates: start: 20090101
  3. CELEBREX [Suspect]
     Indication: ARTHRALGIA
     Dates: end: 20100401

REACTIONS (5)
  - DYSPNOEA [None]
  - ELECTROCARDIOGRAM REPOLARISATION ABNORMALITY [None]
  - LEFT VENTRICULAR HYPERTROPHY [None]
  - WEIGHT DECREASED [None]
  - WEIGHT INCREASED [None]
